FAERS Safety Report 12428514 (Version 2)
Quarter: 2017Q1

REPORT INFORMATION
  Report Type: Spontaneous
  Country: US (occurrence: US)
  Receive Date: 20160602
  Receipt Date: 20170131
  Transmission Date: 20170428
  Serious: No
  Sender: FDA-Public Use
  Company Number: US-AMGEN-USASP2016067230

PATIENT
  Age: 18 Month
  Sex: Female

DRUGS (1)
  1. ENBREL [Suspect]
     Active Substance: ETANERCEPT
     Indication: JUVENILE IDIOPATHIC ARTHRITIS
     Dosage: 3 ML, QWK
     Route: 065
     Dates: start: 201604

REACTIONS (9)
  - Pyrexia [Recovered/Resolved]
  - Urticaria [Unknown]
  - Infection [Unknown]
  - Gastroenteritis viral [Unknown]
  - Nasopharyngitis [Unknown]
  - Rhinorrhoea [Unknown]
  - Off label use [Unknown]
  - Rash [Not Recovered/Not Resolved]
  - Cough [Unknown]

NARRATIVE: CASE EVENT DATE: 2016
